FAERS Safety Report 12859686 (Version 3)
Quarter: 2021Q3

REPORT INFORMATION
  Report Type: Spontaneous
  Country: FR (occurrence: FR)
  Receive Date: 20161018
  Receipt Date: 20210913
  Transmission Date: 20211014
  Serious: Yes (Hospitalization, Congenital Anomaly, Other)
  Sender: FDA-Public Use
  Company Number: FR-ABBVIE-16P-056-1755935-00

PATIENT
  Sex: Male

DRUGS (1)
  1. DEPAKINE [Suspect]
     Active Substance: VALPROATE SODIUM
     Indication: MATERNAL EXPOSURE TIMING UNSPECIFIED
     Route: 064

REACTIONS (46)
  - Myopia [Not Recovered/Not Resolved]
  - Lordosis [Unknown]
  - Behaviour disorder [Unknown]
  - Ophthalmoplegia [Unknown]
  - Anxiety [Unknown]
  - Learning disability [Not Recovered/Not Resolved]
  - Congenital musculoskeletal anomaly [Not Recovered/Not Resolved]
  - Muscle spasms [Unknown]
  - Kyphosis [Not Recovered/Not Resolved]
  - Language disorder [Recovered/Resolved]
  - Fine motor skill dysfunction [Unknown]
  - Dysmorphism [Unknown]
  - Cryptorchism [Unknown]
  - Impaired reasoning [Unknown]
  - Bruxism [Unknown]
  - Astigmatism [Not Recovered/Not Resolved]
  - Cryptorchism [Recovered/Resolved]
  - Aggression [Unknown]
  - Neonatal deafness [Unknown]
  - Disturbance in attention [Unknown]
  - Tic [Unknown]
  - Learning disability [Unknown]
  - Bronchitis [Unknown]
  - Foetal exposure during pregnancy [Unknown]
  - Attention deficit hyperactivity disorder [Not Recovered/Not Resolved]
  - Talipes [Not Recovered/Not Resolved]
  - Distractibility [Unknown]
  - Speech disorder [Unknown]
  - Cognitive disorder [Unknown]
  - Ear infection [Unknown]
  - Diplopia [Unknown]
  - Echolalia [Unknown]
  - Hyperhidrosis [Not Recovered/Not Resolved]
  - Pectus excavatum [Not Recovered/Not Resolved]
  - Urinary tract infection [Unknown]
  - Stereotypy [Unknown]
  - Fine motor delay [Unknown]
  - Tourette^s disorder [Unknown]
  - Supernumerary nipple [Not Recovered/Not Resolved]
  - Heterophoria [Unknown]
  - Amblyopia [Unknown]
  - Foot deformity [Unknown]
  - Educational problem [Unknown]
  - Strabismus [Unknown]
  - Intellectual disability [Unknown]
  - Agitation neonatal [Unknown]

NARRATIVE: CASE EVENT DATE: 2008
